FAERS Safety Report 12996938 (Version 3)
Quarter: 2018Q1

REPORT INFORMATION
  Report Type: Spontaneous
  Country: BE (occurrence: BE)
  Receive Date: 20161205
  Receipt Date: 20180213
  Transmission Date: 20180508
  Serious: Yes (Death, Life-Threatening, Other)
  Sender: FDA-Public Use
  Company Number: BE-BRISTOL-MYERS SQUIBB COMPANY-BMS-2016-062059

PATIENT
  Age: 62 Year
  Sex: Male
  Weight: 75 kg

DRUGS (12)
  1. CLEXANE [Concomitant]
     Active Substance: ENOXAPARIN SODIUM
     Indication: PROPHYLAXIS
     Dosage: 60 MG, BID
     Route: 058
     Dates: start: 20170803
  2. MEDROL [Concomitant]
     Active Substance: METHYLPREDNISOLONE
     Indication: NON-SMALL CELL LUNG CANCER
     Dosage: 32 MG, QD
     Route: 048
     Dates: start: 20170816
  3. ASPIRIN                            /00002701/ [Concomitant]
     Active Substance: ASPIRIN
     Indication: PRODUCT USED FOR UNKNOWN INDICATION
     Dosage: 30 MG, QD
     Route: 065
     Dates: start: 201604, end: 201607
  4. D-VITAL CALCIUM [Concomitant]
     Indication: FATIGUE
     Dosage: UNK
     Route: 048
     Dates: start: 201509
  5. ZANIDIP [Concomitant]
     Active Substance: LERCANIDIPINE HYDROCHLORIDE
     Indication: PRODUCT USED FOR UNKNOWN INDICATION
     Dosage: 20 MG, QD
     Route: 065
     Dates: start: 201604, end: 201607
  6. OPDIVO [Suspect]
     Active Substance: NIVOLUMAB
     Indication: NON-SMALL CELL LUNG CANCER
     Dosage: 222 MG, Q2WK
     Route: 042
     Dates: start: 20160309, end: 20170622
  7. EMCONCOR [Concomitant]
     Active Substance: BISOPROLOL FUMARATE
     Indication: OXYGEN THERAPY
     Dosage: 2.5 MG, QD
     Route: 048
  8. XANAX [Concomitant]
     Active Substance: ALPRAZOLAM
     Indication: ANXIETY
     Dosage: 1 MG, PRN
     Route: 048
     Dates: start: 20170816
  9. NEBIVOLOL. [Concomitant]
     Active Substance: NEBIVOLOL
     Indication: PRODUCT USED FOR UNKNOWN INDICATION
     Dosage: 5 MG, QD
     Route: 065
     Dates: start: 201604, end: 201607
  10. DAFALGAN [Concomitant]
     Active Substance: ACETAMINOPHEN
     Indication: PAIN
     Dosage: 1 G, PRN
     Route: 048
     Dates: start: 20170105
  11. ATORVASTATIN [Concomitant]
     Active Substance: ATORVASTATIN
     Indication: PRODUCT USED FOR UNKNOWN INDICATION
     Dosage: 20 MG, QD
     Route: 065
     Dates: start: 201604, end: 201607
  12. DUOVENT [Concomitant]
     Active Substance: FENOTEROL HYDROBROMIDE
     Indication: OXYGEN THERAPY
     Dosage: 4 ML, QID
     Route: 065
     Dates: start: 20170908

REACTIONS (4)
  - Malignant neoplasm progression [Fatal]
  - Arthritis [Recovered/Resolved]
  - Myositis [Recovered/Resolved]
  - Superior vena cava syndrome [Unknown]

NARRATIVE: CASE EVENT DATE: 201604
